FAERS Safety Report 14820160 (Version 3)
Quarter: 2018Q2

REPORT INFORMATION
  Report Type: Spontaneous
  Country: US (occurrence: US)
  Receive Date: 20180427
  Receipt Date: 20180604
  Transmission Date: 20180711
  Serious: Yes (Other)
  Sender: FDA-Public Use
  Company Number: US-BAYER-2018-077782

PATIENT
  Age: 44 Year
  Sex: Female

DRUGS (1)
  1. MIRENA [Suspect]
     Active Substance: LEVONORGESTREL
     Dosage: 20 MCG/24HR, CONT
     Route: 015
     Dates: start: 20180323

REACTIONS (6)
  - Genital haemorrhage [Unknown]
  - Abdominal pain lower [Recovered/Resolved]
  - Device issue [Unknown]
  - Procedural pain [Unknown]
  - Pain [Recovered/Resolved]
  - Device expulsion [None]

NARRATIVE: CASE EVENT DATE: 2018
